FAERS Safety Report 22973331 (Version 2)
Quarter: 2023Q4

REPORT INFORMATION
  Report Type: Report from Study
  Country: GB (occurrence: GB)
  Receive Date: 20230922
  Receipt Date: 20231018
  Transmission Date: 20240110
  Serious: Yes (Other)
  Sender: FDA-Public Use
  Company Number: GB-SAMSUNG BIOEPIS-SB-2023-25193

PATIENT
  Sex: Male

DRUGS (1)
  1. ETANERCEPT [Suspect]
     Active Substance: ETANERCEPT
     Indication: Psoriatic arthropathy
     Route: 058
     Dates: start: 20230915

REACTIONS (6)
  - Chest discomfort [Unknown]
  - Throat tightness [Unknown]
  - Visual impairment [Unknown]
  - Injection site erythema [Unknown]
  - Injection site swelling [Unknown]
  - Ophthalmic migraine [Unknown]
